FAERS Safety Report 8991521 (Version 1)
Quarter: 2012Q4

REPORT INFORMATION
  Report Type: 
  Country: JP (occurrence: JP)
  Receive Date: 20121231
  Receipt Date: 20121231
  Transmission Date: 20130627
  Serious: Yes (Hospitalization)
  Sender: FDA-Public Use
  Company Number: JP-009507513-1212JPN011101

PATIENT
  Sex: Female
  Weight: 61 kg

DRUGS (12)
  1. PEGINTRON [Suspect]
     Indication: CHRONIC HEPATITIS C
     Dosage: 1.6 Microgram per kilogram, qw, route - oral
     Dates: start: 20120905, end: 20121101
  2. REBETOL [Suspect]
     Indication: CHRONIC HEPATITIS C
     Dosage: 800 mg, qd
     Route: 048
     Dates: start: 20120905, end: 20121031
  3. REBETOL [Suspect]
     Dosage: 600 mg, qd
     Route: 048
     Dates: start: 20121101, end: 20121107
  4. TELAVIC [Suspect]
     Indication: CHRONIC HEPATITIS C
     Dosage: 1500 mg, qd
     Route: 048
     Dates: start: 20120905, end: 20121031
  5. METHYCOBAL [Concomitant]
     Indication: VIITH NERVE PARALYSIS
     Dosage: 1500 Microgram, qd, formulation POR
     Route: 048
  6. JUVELA [Concomitant]
     Indication: VIITH NERVE PARALYSIS
     Dosage: 150 mg, qd, Formulation POR
     Route: 048
  7. DIOVAN [Concomitant]
     Indication: ESSENTIAL HYPERTENSION
     Dosage: 40 mg, qd, Formulation POR
     Route: 048
     Dates: start: 20120905, end: 20121031
  8. NIZATIDINE [Concomitant]
     Indication: PROPHYLAXIS
     Dosage: 300 mg, qd, Formulation POR
     Route: 048
     Dates: start: 20120905, end: 20121107
  9. PROMAC (POLAPREZINC) [Concomitant]
     Indication: PROPHYLAXIS
     Dosage: 150 mg, qd, Formulation POR
     Route: 048
     Dates: start: 20120905, end: 20121107
  10. EPADEL S [Concomitant]
     Indication: PROPHYLAXIS
     Dosage: 1200 mg, qd, Formulation POR
     Route: 048
     Dates: start: 20120905, end: 20121107
  11. LENDEM D [Concomitant]
     Indication: PROPHYLAXIS
     Dosage: 0.25 mg/day, as needed, Formulation POR
     Route: 048
     Dates: start: 20120912, end: 20121106
  12. MYSLEE [Concomitant]
     Indication: PROPHYLAXIS
     Dosage: 5 mg, qd, Formulation POR
     Route: 048
     Dates: start: 20120907, end: 20120921

REACTIONS (1)
  - Loss of consciousness [Not Recovered/Not Resolved]
